FAERS Safety Report 6081274-0 (Version None)
Quarter: 2009Q1

REPORT INFORMATION
  Report Type: 
  Country: None (occurrence: None)
  Receive Date: 20090213
  Receipt Date: 20090202
  Transmission Date: 20090719
  Serious: Yes (Death, Other)
  Sender: FDA-Public Use
  Company Number: 2009S1001887

PATIENT
  Age: 34 Year
  Sex: Male

DRUGS (2)
  1. IRBESARTAN [Suspect]
  2. HYDROCHLOROTHIAZIDE [Suspect]

REACTIONS (2)
  - CHOLESTATIC LIVER INJURY [None]
  - RENAL FAILURE [None]
